FAERS Safety Report 5715392-0 (Version None)
Quarter: 2008Q2

REPORT INFORMATION
  Report Type: 
  Country: None (occurrence: None)
  Receive Date: 20080423
  Receipt Date: 20080414
  Transmission Date: 20081010
  Serious: Yes (Hospitalization)
  Sender: FDA-Public Use
  Company Number: FR-PFIZER INC-2008033383

PATIENT
  Sex: Female

DRUGS (4)
  1. DALACINE [Suspect]
     Route: 048
  2. AMOXICILLIN [Suspect]
     Indication: RESPIRATORY DISORDER
     Dosage: DAILY DOSE:1GRAM
     Route: 048
     Dates: start: 20071011, end: 20071019
  3. CLARITHROMYCIN [Suspect]
     Indication: ULCER
     Dosage: DAILY DOSE:1GRAM
     Route: 048
     Dates: start: 20071011, end: 20071018
  4. NEXIUM [Suspect]
     Indication: ULCER
     Dosage: DAILY DOSE:40MG
     Route: 048
     Dates: start: 20071011, end: 20071019

REACTIONS (1)
  - STATUS EPILEPTICUS [None]
